FAERS Safety Report 19419867 (Version 1)
Quarter: 2021Q2

REPORT INFORMATION
  Report Type: Spontaneous
  Country: DE (occurrence: DE)
  Receive Date: 20210616
  Receipt Date: 20210616
  Transmission Date: 20210717
  Serious: Yes (Hospitalization, Other)
  Sender: FDA-Public Use
  Company Number: DE-AUROBINDO-AUR-APL-2021-024079

PATIENT
  Age: 27 Year
  Sex: Female
  Weight: 100 kg

DRUGS (6)
  1. CLOZAPINE. [Suspect]
     Active Substance: CLOZAPINE
     Indication: PRODUCT USED FOR UNKNOWN INDICATION
     Dosage: 150 MILLIGRAM, TWO TIMES A DAY (150 MG ? 0? 150 MG)
     Route: 048
     Dates: start: 2020, end: 20210209
  2. LAMOTRIGINE. [Concomitant]
     Active Substance: LAMOTRIGINE
     Indication: PRODUCT USED FOR UNKNOWN INDICATION
     Dosage: 150 MILLIGRAM, TWO TIMES A DAY (150 MG ? 0?150 MG LONG TERM)
     Route: 048
  3. CHLORPROTHIXENE [Concomitant]
     Active Substance: CHLORPROTHIXENE
     Indication: PRODUCT USED FOR UNKNOWN INDICATION
     Dosage: UNK, AS NECESSARY (RELIEVER MEDICATION NEW AND AT SHORT NOTICE)
     Route: 048
  4. OLANZAPINE. [Concomitant]
     Active Substance: OLANZAPINE
     Indication: PRODUCT USED FOR UNKNOWN INDICATION
     Dosage: 5 MILLIGRAM, ONCE A DAY (0?0?5MG LONG TERM)
     Route: 048
  5. PIPAMPERONE [Concomitant]
     Active Substance: PIPAMPERONE
     Indication: PRODUCT USED FOR UNKNOWN INDICATION
     Dosage: UNK, AS NECESSARY (NEW MEDICATION ON DEMAND AND AT SHORT NOTICE)
     Route: 048
  6. CLOZAPINE. [Suspect]
     Active Substance: CLOZAPINE
     Dosage: 500 MILLIGRAM, ONCE A DAY (SUICIDE ATTEMPT WITH A SINGLE 500 MG INSTEAD OF A DAILY DOSE OF 300 MG)
     Route: 065
     Dates: start: 20210202

REACTIONS (2)
  - Flank pain [Recovering/Resolving]
  - Acute kidney injury [Recovering/Resolving]

NARRATIVE: CASE EVENT DATE: 20210209
